FAERS Safety Report 4312856-1 (Version None)
Quarter: 2004Q1

REPORT INFORMATION
  Report Type: 
  Country: None (occurrence: None)
  Receive Date: 20040304
  Receipt Date: 20040217
  Transmission Date: 20041129
  Serious: Yes (Hospitalization)
  Sender: FDA-Public Use
  Company Number: A02200400550

PATIENT
  Age: 0 Day
  Sex: Male

DRUGS (1)
  1. KERLONE [Suspect]
     Indication: MATERNAL HYPERTENSION AFFECTING FOETUS
     Dosage: TRANSPLACENTAL
     Route: 064
     Dates: start: 20030301, end: 20031227

REACTIONS (8)
  - BRADYCARDIA FOETAL [None]
  - CAESAREAN SECTION [None]
  - CEREBRAL HAEMORRHAGE NEONATAL [None]
  - HYPOCALCAEMIA [None]
  - HYPOGLYCAEMIA NEONATAL [None]
  - MATERNAL DRUGS AFFECTING FOETUS [None]
  - NEONATAL RESPIRATORY DISTRESS SYNDROME [None]
  - PREGNANCY [None]
